FAERS Safety Report 6579396-0 (Version None)
Quarter: 2010Q1

REPORT INFORMATION
  Report Type: 
  Country: None (occurrence: None)
  Receive Date: 20100212
  Receipt Date: 20100204
  Transmission Date: 20100710
  Serious: Yes (Hospitalization)
  Sender: FDA-Public Use
  Company Number: DE-JNJFOC-20100202900

PATIENT
  Sex: Male
  Weight: 115 kg

DRUGS (7)
  1. REMICADE [Suspect]
     Indication: CROHN'S DISEASE
     Route: 042
  2. REMICADE [Suspect]
     Route: 042
  3. REMICADE [Suspect]
     Route: 042
  4. AZATHIOPRIN [Suspect]
     Indication: CROHN'S DISEASE
     Dosage: FREQUENCY: 2-0-2
  5. BUDESONIDE [Suspect]
     Indication: CROHN'S DISEASE
     Dosage: FREQUENCY: 1-0-0
  6. OMEPRAZOLE [Suspect]
     Indication: PROPHYLAXIS
     Dosage: FREQUENCY: 1-0-0
  7. METOPROLOL TARTRATE [Suspect]
     Indication: HYPERTENSION
     Dosage: FREQUENCY: 1-0-0

REACTIONS (1)
  - GASTRITIS [None]
